FAERS Safety Report 4328415-0 (Version None)
Quarter: 2004Q1

REPORT INFORMATION
  Report Type: 
  Country: None (occurrence: None)
  Receive Date: 20040325
  Receipt Date: 20030324
  Transmission Date: 20041129
  Serious: No
  Sender: FDA-Public Use
  Company Number: TAP2002Q01787

PATIENT
  Age: 65 Year
  Sex: Male
  Weight: 71.6683 kg

DRUGS (5)
  1. LUPRON DEPOT [Suspect]
     Indication: PROSTATE CANCER
     Dosage: 7.5 MG, 1 IN 1 M, INTRAMUSCULAR
     Route: 030
     Dates: start: 20000401, end: 20010701
  2. CALCIUM SUPPLEMENT (CALCIUM) (TABLETS) [Concomitant]
  3. VALIUM [Concomitant]
  4. KEFLEX [Concomitant]
  5. EULEXIN [Concomitant]

REACTIONS (3)
  - BALANITIS [None]
  - PENILE PAIN [None]
  - PHIMOSIS [None]
